FAERS Safety Report 16486338 (Version 2)
Quarter: 2019Q3

REPORT INFORMATION
  Report Type: Spontaneous
  Country: DE (occurrence: DE)
  Receive Date: 20190627
  Receipt Date: 20190701
  Transmission Date: 20191004
  Serious: Yes (Life-Threatening, Hospitalization, Other)
  Sender: FDA-Public Use
  Company Number: DE-MYLANLABS-2019M1060122

PATIENT
  Age: 74 Year
  Sex: Male

DRUGS (20)
  1. QUETIAPINE. [Interacting]
     Active Substance: QUETIAPINE
     Dosage: 100 MILLIGRAM, QD
     Route: 048
     Dates: start: 20131104, end: 20131105
  2. VALPROATE [Interacting]
     Active Substance: VALPROIC ACID
     Dosage: 2400 MG, UNK
     Route: 048
     Dates: start: 20131111, end: 20140315
  3. QUETIAPINE. [Suspect]
     Active Substance: QUETIAPINE
     Indication: PRODUCT USED FOR UNKNOWN INDICATION
     Dosage: 50 MILLIGRAM, QD
     Route: 048
     Dates: start: 20131103
  4. QUETIAPINE. [Interacting]
     Active Substance: QUETIAPINE
     Dosage: 400 MILLIGRAM, QD
     Route: 048
     Dates: start: 20131122
  5. VALPROATE [Interacting]
     Active Substance: VALPROIC ACID
     Dosage: 1600 MILLIGRAM, QD
     Route: 048
     Dates: start: 20131102, end: 20131110
  6. VALPROATE [Interacting]
     Active Substance: VALPROIC ACID
     Dosage: 1800 MILLIGRAM, QD
     Route: 048
     Dates: start: 20140316, end: 20140401
  7. LITHIUM. [Concomitant]
     Active Substance: LITHIUM
     Indication: PRODUCT USED FOR UNKNOWN INDICATION
     Dosage: UNK
     Route: 065
  8. QUETIAPINE. [Interacting]
     Active Substance: QUETIAPINE
     Dosage: 200 MILLIGRAM, QD
     Route: 048
     Dates: start: 20131106, end: 20131108
  9. QUETIAPINE. [Interacting]
     Active Substance: QUETIAPINE
     Dosage: 300 MILLIGRAM, QD
     Route: 048
     Dates: start: 20131109, end: 20131112
  10. QUETIAPINE. [Interacting]
     Active Substance: QUETIAPINE
     Dosage: 450 MG, QD
     Route: 048
     Dates: start: 20131116, end: 20131118
  11. FINASTERID [Concomitant]
     Active Substance: FINASTERIDE
     Indication: PRODUCT USED FOR UNKNOWN INDICATION
     Dosage: 5 MILLIGRAM, QD
     Route: 065
     Dates: start: 20120101
  12. QUETIAPINE. [Interacting]
     Active Substance: QUETIAPINE
     Dosage: 400 MILLIGRAM, QD
     Route: 048
     Dates: start: 20131113, end: 20131115
  13. ABILIFY [Interacting]
     Active Substance: ARIPIPRAZOLE
     Indication: PRODUCT USED FOR UNKNOWN INDICATION
     Dosage: 10 MG, QD
     Route: 048
     Dates: start: 20131101, end: 20131112
  14. QUETIAPINE. [Interacting]
     Active Substance: QUETIAPINE
     Dosage: 100 MILLIGRAM, QD
     Route: 048
     Dates: start: 20131109, end: 20131112
  15. QUETIAPINE. [Interacting]
     Active Substance: QUETIAPINE
     Dosage: 500 MILLIGRAM, QD
     Route: 048
     Dates: start: 20131119, end: 20131121
  16. ABILIFY [Interacting]
     Active Substance: ARIPIPRAZOLE
     Dosage: 20 MG, QD
     Route: 048
     Dates: start: 20131113, end: 20131115
  17. ABILIFY [Interacting]
     Active Substance: ARIPIPRAZOLE
     Dosage: 30 MILLIGRAM, QD
     Route: 048
     Dates: start: 20131116, end: 20131215
  18. VALPROATE [Interacting]
     Active Substance: VALPROIC ACID
     Indication: PRODUCT USED FOR UNKNOWN INDICATION
     Dosage: 900 MILLIGRAM, QD
     Route: 048
     Dates: start: 20130301, end: 20131101
  19. VALPROATE [Interacting]
     Active Substance: VALPROIC ACID
     Dosage: 1800 MILLIGRAM, QD
     Dates: start: 20130402
  20. ALFUZOSIN [Concomitant]
     Active Substance: ALFUZOSIN
     Indication: PRODUCT USED FOR UNKNOWN INDICATION
     Dosage: 10 MILLIGRAM, QD
     Route: 048
     Dates: start: 20120101

REACTIONS (3)
  - Parkinsonism [Unknown]
  - Drug interaction [Unknown]
  - Coma [Recovered/Resolved]

NARRATIVE: CASE EVENT DATE: 20131121
